FAERS Safety Report 23863969 (Version 4)
Quarter: 2024Q3

REPORT INFORMATION
  Report Type: Spontaneous
  Country: GB (occurrence: GB)
  Receive Date: 20240516
  Receipt Date: 20240917
  Transmission Date: 20241017
  Serious: Yes (Other)
  Sender: NOVARTIS
  Company Number: GB-002147023-NVSC2024GB100855

PATIENT
  Sex: Male

DRUGS (1)
  1. SCEMBLIX [Suspect]
     Active Substance: ASCIMINIB HYDROCHLORIDE
     Indication: Philadelphia positive chronic myeloid leukaemia
     Dosage: 40 MG, BID
     Route: 065
     Dates: start: 20221215

REACTIONS (17)
  - Thrombocytopenia [Unknown]
  - Neutropenia [Unknown]
  - Platelet count increased [Unknown]
  - White blood cell count decreased [Unknown]
  - Drug intolerance [Unknown]
  - Aspartate aminotransferase increased [Unknown]
  - Alanine aminotransferase increased [Unknown]
  - Rash [Unknown]
  - Lipase increased [Unknown]
  - Vomiting [Unknown]
  - Amylase increased [Unknown]
  - Nausea [Unknown]
  - Diarrhoea [Unknown]
  - Drug ineffective [Unknown]
  - Fatigue [Unknown]
  - Weight decreased [Unknown]
  - Night sweats [Unknown]
